FAERS Safety Report 23697606 (Version 1)
Quarter: 2024Q2

REPORT INFORMATION
  Report Type: Spontaneous
  Country: US (occurrence: None)
  Receive Date: 20240401
  Receipt Date: 20240401
  Transmission Date: 20240716
  Serious: Yes (unspecified)
  Sender: FDA-Public Use
  Company Number: None

PATIENT
  Age: 39 Year
  Sex: Female

DRUGS (1)
  1. MIRENA [Suspect]
     Active Substance: LEVONORGESTREL
     Dates: start: 20220208, end: 20240312

REACTIONS (14)
  - Ovarian cyst [None]
  - Breast pain [None]
  - Mood altered [None]
  - Depression [None]
  - Abdominal pain lower [None]
  - Haemorrhage [None]
  - Dizziness [None]
  - Nausea [None]
  - Nipple swelling [None]
  - Nipple pain [None]
  - Asthenia [None]
  - Apathy [None]
  - Mood swings [None]
  - Hormone level abnormal [None]

NARRATIVE: CASE EVENT DATE: 20230901
